FAERS Safety Report 6991910-X (Version None)
Quarter: 2010Q3

REPORT INFORMATION
  Report Type: 
  Country: None (occurrence: None)
  Receive Date: 20100915
  Receipt Date: 20100915
  Transmission Date: 20110219
  Serious: Yes (Other)
  Sender: FDA-Public Use
  Company Number: None

PATIENT
  Sex: Female

DRUGS (2)
  1. NEOPHRAM 2.5% [Suspect]
     Dates: start: 20100702, end: 20100702
  2. TROPICAMIDE [Suspect]
     Dates: start: 20100702, end: 20100702

REACTIONS (5)
  - ATRIAL FIBRILLATION [None]
  - DYSPNOEA [None]
  - EYE DISORDER [None]
  - HEART VALVE INCOMPETENCE [None]
  - PALPITATIONS [None]
